FAERS Safety Report 7588434-8 (Version None)
Quarter: 2011Q3

REPORT INFORMATION
  Report Type: 
  Country: None (occurrence: None)
  Receive Date: 20110705
  Receipt Date: 20110624
  Transmission Date: 20111222
  Serious: Yes (Hospitalization)
  Sender: FDA-Public Use
  Company Number: US-BAYER-2011-057032

PATIENT
  Age: 36 Year
  Sex: Female
  Weight: 65.76 kg

DRUGS (11)
  1. MOTRIN [Concomitant]
  2. LEXAPRO [Concomitant]
     Dosage: 10 MG, UNK
  3. NEXIUM [Concomitant]
     Dosage: 40 MG, UNK
  4. SUCRALFATE [Concomitant]
     Dosage: 1 G, UNK
  5. CALTRATE [CALCIUM CARBONATE] [Concomitant]
  6. DROSPIRENONE AND ETHINYL ESTRADIOL [Suspect]
     Dosage: UNK
     Dates: start: 20080717, end: 20100909
  7. MISOPROSTOL [Concomitant]
     Dosage: 100 MG, UNK
  8. YASMIN [Suspect]
     Dosage: UNK
     Dates: start: 20070622, end: 20080622
  9. OMEPRAZOLE [Concomitant]
     Dosage: 20 MG, UNK
  10. SUMATRIPTAN SUCCINATE [Concomitant]
     Dosage: 100 MG, UNK
  11. MULTI-VITAMINS [Concomitant]

REACTIONS (4)
  - OVARIAN GERM CELL TERATOMA BENIGN [None]
  - GALLBLADDER DISORDER [None]
  - BILIARY DYSKINESIA [None]
  - CHOLECYSTITIS CHRONIC [None]
